FAERS Safety Report 9914414 (Version 1)
Quarter: 2014Q1

REPORT INFORMATION
  Report Type: Spontaneous
  Country: US (occurrence: None)
  Receive Date: 20140219
  Receipt Date: 20140219
  Transmission Date: 20141002
  Serious: Yes (Life-Threatening)
  Sender: FDA-Public Use
  Company Number: None

PATIENT
  Age: 64 Year
  Sex: Male
  Weight: 76.2 kg

DRUGS (3)
  1. DEPO TESTOSTERONE [Suspect]
     Indication: IRRITABILITY
     Dosage: EVERY 10-14 DAYS
     Route: 030
  2. DEPO TESTOSTERONE [Suspect]
     Indication: FATIGUE
     Dosage: EVERY 10-14 DAYS
     Route: 030
  3. DEPO TESTOSTERONE [Suspect]
     Indication: ASTHENIA
     Dosage: EVERY 10-14 DAYS
     Route: 030

REACTIONS (2)
  - Myocardial infarction [None]
  - Cardio-respiratory arrest [None]
